FAERS Safety Report 17730988 (Version 2)
Quarter: 2020Q3

REPORT INFORMATION
  Report Type: Other
  Country: US (occurrence: US)
  Receive Date: 20200430
  Receipt Date: 20200930
  Transmission Date: 20201102
  Serious: Yes (Other)
  Sender: FDA-Public Use
  Company Number: US-ROCHE-1955150

PATIENT
  Age: 35 Year
  Sex: Female

DRUGS (5)
  1. TECFIDERA [Concomitant]
     Active Substance: DIMETHYL FUMARATE
  2. TYSABRI [Concomitant]
     Active Substance: NATALIZUMAB
  3. OCREVUS [Suspect]
     Active Substance: OCRELIZUMAB
     Indication: MULTIPLE SCLEROSIS
     Dosage: 20/MAR/2018, 13/OCT/2018, 13/APR/2019, 28/SEP/2019, 22/MAY/2020.
     Route: 042
     Dates: start: 20170831
  4. AUBAGIO [Concomitant]
     Active Substance: TERIFLUNOMIDE
  5. RITUXAN [Suspect]
     Active Substance: RITUXIMAB
     Indication: MULTIPLE SCLEROSIS
     Route: 065

REACTIONS (7)
  - Pneumonia [Recovering/Resolving]
  - Intentional product use issue [Unknown]
  - Pruritus [Recovered/Resolved]
  - Blood iron decreased [Recovered/Resolved]
  - Amnesia [Unknown]
  - Off label use [Unknown]
  - Multiple sclerosis relapse [Recovered/Resolved]

NARRATIVE: CASE EVENT DATE: 20200407
